FAERS Safety Report 5580020-4 (Version None)
Quarter: 2007Q4

REPORT INFORMATION
  Report Type: 
  Country: None (occurrence: None)
  Receive Date: 20071227
  Receipt Date: 20071227
  Transmission Date: 20080405
  Serious: Yes (Hospitalization)
  Sender: FDA-Public Use
  Company Number: None

PATIENT
  Sex: Male
  Weight: 127.0072 kg

DRUGS (1)
  1. CHANTIX [Suspect]
     Indication: SMOKING CESSATION THERAPY
     Dosage: I GOT THE FIRST DOSE PACK ONCE A DAY PO
     Route: 048
     Dates: start: 20070201, end: 20070430

REACTIONS (2)
  - DELUSION [None]
  - THINKING ABNORMAL [None]
